FAERS Safety Report 6849486-3 (Version None)
Quarter: 2010Q3

REPORT INFORMATION
  Report Type: 
  Country: None (occurrence: None)
  Receive Date: 20100716
  Receipt Date: 20071001
  Transmission Date: 20110219
  Serious: No
  Sender: FDA-Public Use
  Company Number: US-PFIZER INC-2007082465

PATIENT
  Sex: Female
  Weight: 58.181 kg

DRUGS (2)
  1. CHANTIX [Suspect]
     Indication: SMOKING CESSATION THERAPY
     Dates: start: 20070926, end: 20070928
  2. XANAX [Concomitant]

REACTIONS (4)
  - BLOOD PRESSURE INCREASED [None]
  - BURNING SENSATION [None]
  - EYE PAIN [None]
  - FEELING ABNORMAL [None]
